FAERS Safety Report 8984594 (Version 1)
Quarter: 2012Q4

REPORT INFORMATION
  Report Type: Spontaneous
  Country: FR (occurrence: None)
  Receive Date: 20121217
  Receipt Date: 20121217
  Transmission Date: 20130627
  Serious: Yes (Other)
  Sender: FDA-Public Use
  Company Number: 2012-21952

PATIENT
  Age: 55 Year
  Sex: Male

DRUGS (2)
  1. VINORELBINE [Suspect]
     Indication: BRONCHIAL CARCINOMA
     Dates: start: 201004, end: 201008
  2. CISPLATIN [Suspect]
     Indication: BRONCHIAL CARCINOMA

REACTIONS (3)
  - Haematotoxicity [None]
  - Septic shock [None]
  - Staphylococcal sepsis [None]
